FAERS Safety Report 23320288 (Version 1)
Quarter: 2023Q4

REPORT INFORMATION
  Report Type: Spontaneous
  Country: US (occurrence: US)
  Receive Date: 20231220
  Receipt Date: 20231220
  Transmission Date: 20240110
  Serious: No
  Sender: FDA-Public Use
  Company Number: US-BRISTOL-MYERS SQUIBB COMPANY-2023-181550

PATIENT
  Age: 51 Year
  Sex: Female

DRUGS (3)
  1. SPRYCEL [Suspect]
     Active Substance: DASATINIB
     Indication: Chronic myeloid leukaemia
     Dosage: FREQUENCY: ONCE DAILY
     Route: 048
     Dates: start: 201805
  2. SPRYCEL [Suspect]
     Active Substance: DASATINIB
     Indication: Acute myeloid leukaemia
     Dosage: ONE-HALF OF A 50 MG TABLET (25MG TOTAL) ONCE DAILY
     Dates: start: 202306, end: 20231101
  3. SPRYCEL [Suspect]
     Active Substance: DASATINIB
     Dosage: 50 MG DAILY
     Dates: start: 2023

REACTIONS (5)
  - Wrong technique in product usage process [Unknown]
  - Back pain [Unknown]
  - Heart rate abnormal [Unknown]
  - Blood pressure abnormal [Unknown]
  - Blood potassium increased [Unknown]

NARRATIVE: CASE EVENT DATE: 20230601
